FAERS Safety Report 15631076 (Version 1)
Quarter: 2018Q4

REPORT INFORMATION
  Report Type: Report from Study
  Country: ES (occurrence: ES)
  Receive Date: 20181119
  Receipt Date: 20181119
  Transmission Date: 20190205
  Serious: Yes (Hospitalization)
  Sender: FDA-Public Use
  Company Number: ES-IPSEN BIOPHARMACEUTICALS, INC.-2018-16974

PATIENT
  Age: 88 Year
  Sex: Male
  Weight: 83 kg

DRUGS (9)
  1. DECAPEPTYL TRIMESTRAL 11.25MG [Suspect]
     Active Substance: TRIPTORELIN PAMOATE
     Indication: PROSTATE CANCER
     Route: 030
     Dates: start: 20180601
  2. FOLI DOCE [Concomitant]
  3. ENZALUTAMIDE [Suspect]
     Active Substance: ENZALUTAMIDE
     Indication: PROSTATE CANCER
     Route: 048
     Dates: start: 20180601
  4. HIDROFEROL [Concomitant]
     Active Substance: CALCIFEDIOL
  5. METAMIZOLE [Concomitant]
     Active Substance: METAMIZOLE
  6. PARACETAMOL [Concomitant]
     Active Substance: ACETAMINOPHEN
  7. ALENDRONIC ACID [Concomitant]
     Active Substance: ALENDRONIC ACID
  8. BISOPROLOL [Concomitant]
     Active Substance: BISOPROLOL
  9. TARDYFERON [Concomitant]
     Active Substance: FERROUS SULFATE

REACTIONS (1)
  - Femur fracture [Recovered/Resolved]

NARRATIVE: CASE EVENT DATE: 20180730
